FAERS Safety Report 9098781 (Version 3)
Quarter: 2013Q2

REPORT INFORMATION
  Report Type: Spontaneous
  Country: GB (occurrence: GB)
  Receive Date: 20130213
  Receipt Date: 20130411
  Transmission Date: 20140414
  Serious: Yes (Other)
  Sender: FDA-Public Use
  Company Number: GB-BAXTER-2013BAX004940

PATIENT
  Age: 28 Year
  Sex: Female

DRUGS (2)
  1. KIOVIG [Suspect]
     Indication: MYASTHENIA GRAVIS
     Route: 042
     Dates: start: 20121017, end: 20121017
  2. KIOVIG [Suspect]
     Indication: OFF LABEL USE

REACTIONS (7)
  - Meningitis aseptic [Unknown]
  - Headache [Not Recovered/Not Resolved]
  - Back pain [Not Recovered/Not Resolved]
  - Cystitis-like symptom [Not Recovered/Not Resolved]
  - Off label use [Unknown]
  - Urinary tract infection [Recovering/Resolving]
  - Bacterial test positive [None]
